FAERS Safety Report 23070624 (Version 1)
Quarter: 2023Q4

REPORT INFORMATION
  Report Type: Report from Study
  Country: US (occurrence: US)
  Receive Date: 20231016
  Receipt Date: 20231016
  Transmission Date: 20240110
  Serious: Yes (Other)
  Sender: FDA-Public Use
  Company Number: US-ABBVIE-5447284

PATIENT
  Age: 72 Year
  Sex: Male

DRUGS (2)
  1. VENCLEXTA [Suspect]
     Active Substance: VENETOCLAX
     Indication: Plasma cell myeloma
     Route: 048
     Dates: start: 202102
  2. VENCLEXTA [Suspect]
     Active Substance: VENETOCLAX
     Indication: Plasma cell myeloma
     Route: 048

REACTIONS (2)
  - Bronchitis [Unknown]
  - Basal cell carcinoma [Unknown]

NARRATIVE: CASE EVENT DATE: 20230715
